FAERS Safety Report 4535430-0 (Version None)
Quarter: 2004Q4

REPORT INFORMATION
  Report Type: 
  Country: None (occurrence: None)
  Receive Date: 20041222
  Receipt Date: 20040615
  Transmission Date: 20050328
  Serious: Yes (Disabling, Other)
  Sender: FDA-Public Use
  Company Number: GB-MERCK-0406GBR00143

PATIENT
  Age: 57 Year
  Sex: Male
  Weight: 69 kg

DRUGS (5)
  1. ZOCOR [Suspect]
     Indication: HYPERLIPIDAEMIA
     Route: 048
     Dates: start: 20040311, end: 20040519
  2. ZOCOR [Suspect]
     Route: 048
     Dates: start: 20040704, end: 20040714
  3. LOPERAMIDE HYDROCHLORIDE [Concomitant]
     Indication: IRRITABLE BOWEL SYNDROME
     Route: 048
     Dates: start: 20010101
  4. CIMETIDINE [Concomitant]
     Indication: GASTROOESOPHAGEAL REFLUX DISEASE
     Route: 048
     Dates: start: 20010101
  5. ACETAMINOPHEN [Concomitant]
     Route: 048

REACTIONS (1)
  - STEATORRHOEA [None]
